FAERS Safety Report 8358576-8 (Version None)
Quarter: 2012Q2

REPORT INFORMATION
  Report Type: 
  Country: None (occurrence: None)
  Receive Date: 20120514
  Receipt Date: 20120508
  Transmission Date: 20120825
  Serious: No
  Sender: FDA-Public Use
  Company Number: US-PFIZER INC-2012101045

PATIENT
  Sex: Female
  Weight: 54 kg

DRUGS (11)
  1. GABAPENTIN [Suspect]
     Indication: MUSCULOSKELETAL STIFFNESS
     Dosage: 100 MG, 3X/DAY
     Dates: start: 20120321, end: 20120101
  2. LORAZEPAM [Concomitant]
  3. GABAPENTIN [Suspect]
     Indication: MUSCLE SPASMS
     Dosage: 100 MG, 2X/DAY
     Route: 048
     Dates: start: 20120301, end: 20120401
  4. LISINOPRIL [Concomitant]
     Indication: HYPERTENSION
     Dosage: UNK
  5. NEURONTIN [Suspect]
     Indication: MUSCULOSKELETAL STIFFNESS
     Dosage: 100 MG, 2X/DAY
     Route: 048
     Dates: start: 20110801, end: 20120301
  6. LORAZEPAM [Concomitant]
     Indication: TREMOR
     Dosage: 2 MG, UNK
  7. NEURONTIN [Suspect]
     Indication: MUSCLE SPASMS
  8. LORAZEPAM [Suspect]
     Indication: CONVULSION
     Dosage: UNK
  9. GABAPENTIN [Suspect]
     Dosage: 300 MG, 2X/DAY
     Dates: start: 20120101
  10. GABAPENTIN [Suspect]
  11. NEURONTIN [Suspect]

REACTIONS (16)
  - DRUG INEFFECTIVE [None]
  - RENAL PAIN [None]
  - GASTROINTESTINAL DISORDER [None]
  - FEELING ABNORMAL [None]
  - ABDOMINAL PAIN UPPER [None]
  - PAIN [None]
  - WEIGHT DECREASED [None]
  - DYSPHAGIA [None]
  - SOMNOLENCE [None]
  - INCORRECT DOSE ADMINISTERED [None]
  - GASTROINTESTINAL PAIN [None]
  - MUSCLE SPASMS [None]
  - HYPERSENSITIVITY [None]
  - MALAISE [None]
  - EATING DISORDER [None]
  - TREMOR [None]
